FAERS Safety Report 16712073 (Version 2)
Quarter: 2019Q3

REPORT INFORMATION
  Report Type: Report from Study
  Country: ZA (occurrence: ZA)
  Receive Date: 20190816
  Receipt Date: 20190826
  Transmission Date: 20191004
  Serious: Yes (Hospitalization)
  Sender: FDA-Public Use
  Company Number: PHHY2019ZA189935

PATIENT
  Sex: Male

DRUGS (1)
  1. GALVUS MET [Suspect]
     Active Substance: METFORMIN HYDROCHLORIDE\VILDAGLIPTIN
     Indication: DIABETES MELLITUS
     Dosage: 1 DF (1000 MG, METFORMIN, 50 MG, VILDAGLIPTIN) QD
     Route: 048

REACTIONS (3)
  - Cardiac disorder [Recovering/Resolving]
  - Blood disorder [Unknown]
  - Diabetes mellitus [Recovering/Resolving]
